FAERS Safety Report 14391431 (Version 1)
Quarter: 2018Q1

REPORT INFORMATION
  Report Type: Spontaneous
  Country: NL (occurrence: NL)
  Receive Date: 20180116
  Receipt Date: 20180116
  Transmission Date: 20180509
  Serious: Yes (Hospitalization)
  Sender: FDA-Public Use
  Company Number: NL-AUROBINDO-AUR-APL-2018-002009

PATIENT
  Age: 61 Year
  Sex: Female

DRUGS (1)
  1. RABEPRAZOLE GASTRO-RESISTANT TABLETS 20 MG [Suspect]
     Active Substance: RABEPRAZOLE
     Indication: DYSPEPSIA
     Dosage: 1X PER DAG 1 TABLET
     Route: 065
     Dates: start: 20171205, end: 20171222

REACTIONS (1)
  - Palpitations [Recovering/Resolving]

NARRATIVE: CASE EVENT DATE: 20171215
